FAERS Safety Report 12687837 (Version 15)
Quarter: 2017Q4

REPORT INFORMATION
  Report Type: Report from Study
  Country: US (occurrence: US)
  Receive Date: 20160825
  Receipt Date: 20171117
  Transmission Date: 20180320
  Serious: Yes (Hospitalization, Other)
  Sender: FDA-Public Use
  Company Number: US-ACTELION-A-NJ2016-136960

PATIENT
  Age: 76 Year
  Sex: Female
  Weight: 48.98 kg

DRUGS (9)
  1. UPTRAVI [Suspect]
     Active Substance: SELEXIPAG
     Indication: PULMONARY ARTERIAL HYPERTENSION
     Dosage: 400 MCG, BID
     Route: 048
  2. METOPROLOL. [Concomitant]
     Active Substance: METOPROLOL
  3. UPTRAVI [Suspect]
     Active Substance: SELEXIPAG
     Dosage: 1000 MCG, BID
     Route: 048
     Dates: start: 20160317
  4. AMLODIPINE [Concomitant]
     Active Substance: AMLODIPINE BESYLATE
  5. UPTRAVI [Suspect]
     Active Substance: SELEXIPAG
     Dosage: 800 MCG, BID
     Route: 048
  6. COUMADIN [Concomitant]
     Active Substance: WARFARIN SODIUM
  7. FUROSEMIDE. [Concomitant]
     Active Substance: FUROSEMIDE
  8. REVATIO [Concomitant]
     Active Substance: SILDENAFIL CITRATE
  9. UPTRAVI [Suspect]
     Active Substance: SELEXIPAG
     Dosage: 600 MCG, BID
     Route: 048

REACTIONS (30)
  - Dyspnoea [Recovering/Resolving]
  - Fluid retention [Unknown]
  - Renal failure [Unknown]
  - Palpitations [Unknown]
  - Hypotension [Unknown]
  - Dialysis [Unknown]
  - Abdominal distension [Unknown]
  - Cough [Unknown]
  - Hypertension [Unknown]
  - Limb injury [Recovering/Resolving]
  - Memory impairment [Unknown]
  - Drug dose omission [Unknown]
  - Epistaxis [Unknown]
  - Blood glucose decreased [Unknown]
  - Oedema [Unknown]
  - Respiratory tract congestion [Unknown]
  - Nasopharyngitis [Unknown]
  - Decreased appetite [Unknown]
  - Endotracheal intubation [Recovered/Resolved]
  - Hyperhidrosis [Unknown]
  - Arthritis [Unknown]
  - Arthralgia [Unknown]
  - Pulmonary oedema [Unknown]
  - Atrial fibrillation [Recovering/Resolving]
  - Malaise [Unknown]
  - Chest discomfort [Unknown]
  - Anxiety [Unknown]
  - Fall [Recovering/Resolving]
  - Thrombosis [Unknown]
  - Peripheral swelling [Not Recovered/Not Resolved]

NARRATIVE: CASE EVENT DATE: 201610
